FAERS Safety Report 7033410-7 (Version None)
Quarter: 2010Q4

REPORT INFORMATION
  Report Type: 
  Country: None (occurrence: None)
  Receive Date: 20101007
  Receipt Date: 20101004
  Transmission Date: 20110411
  Serious: Yes (Death)
  Sender: FDA-Public Use
  Company Number: GB-TEVA-241561ISR

PATIENT
  Age: 86 Year
  Sex: Female

DRUGS (2)
  1. DOXYCYCLINE [Suspect]
     Indication: INFECTION
  2. INSULIN GLARGINE [Interacting]
     Route: 058

REACTIONS (3)
  - DEATH [None]
  - DRUG INTERACTION [None]
  - HYPOGLYCAEMIA [None]
